FAERS Safety Report 4665889-X (Version None)
Quarter: 2005Q2

REPORT INFORMATION
  Report Type: 
  Country: None (occurrence: None)
  Receive Date: 20050516
  Receipt Date: 20050516
  Transmission Date: 20051028
  Serious: Yes (Hospitalization, Other)
  Sender: FDA-Public Use
  Company Number: None

PATIENT
  Sex: Male
  Weight: 89.1 kg

DRUGS (13)
  1. INTERERFERON-ALPHA [Suspect]
     Dosage: 9.0 MU SC 3X W/EEK. CYCLE = 4 WEEKS
     Route: 058
     Dates: start: 20050125, end: 20050510
  2. ACIPHEX [Concomitant]
  3. ASPIRIN [Concomitant]
  4. AVAPRO [Concomitant]
  5. COLCHICINE [Concomitant]
  6. GLUCOPHAGE [Concomitant]
  7. LISINOPRIL [Concomitant]
  8. METROPOLOL [Concomitant]
  9. NORVASC [Concomitant]
  10. SIMVASTATIN [Concomitant]
  11. SPIRONOLACTONE [Concomitant]
  12. TERAZOSIN [Concomitant]
  13. ZOLOFT [Concomitant]

REACTIONS (3)
  - CARDIAC FAILURE CONGESTIVE [None]
  - HYPOXIA [None]
  - PLATELET COUNT DECREASED [None]
